FAERS Safety Report 4562092-9 (Version None)
Quarter: 2005Q1

REPORT INFORMATION
  Report Type: 
  Country: None (occurrence: None)
  Receive Date: 20050107
  Receipt Date: 20050107
  Transmission Date: 20050727
  Serious: Yes (Hospitalization, Disabling, Other)
  Sender: FDA-Public Use
  Company Number: 2003018755

PATIENT
  Age: 37 Year
  Sex: Female
  Weight: 49.4421 kg

DRUGS (4)
  1. NEURONTIN [Suspect]
     Indication: NEUROPATHIC PAIN
     Dosage: 2400 MG (600, FOUR TIMES A DAY), ORAL
     Route: 048
     Dates: start: 20000113, end: 20000101
  2. LOESTRIN (ANOVLAR) (NORETHINDRONE ACETATE, ETHINYL ESTRADIOL) [Suspect]
     Indication: CONTRACEPTION
     Dates: start: 19980101, end: 20000101
  3. LOESTRIN (ANOVLAR) (NORETHINDRONE ACETATE, ETHINYL ESTRADIOL) [Suspect]
     Indication: ENDOMETRIOSIS
     Dates: start: 19980101, end: 20000101
  4. OXYCODONE HCL [Suspect]
     Indication: PAIN
     Dosage: 20 MG (Q12H), ORAL
     Route: 048
     Dates: start: 20000316, end: 20000101

REACTIONS (76)
  - ABASIA [None]
  - ABDOMINAL DISTENSION [None]
  - ABDOMINAL PAIN [None]
  - AGITATION [None]
  - ANXIETY [None]
  - APATHY [None]
  - ARTHRALGIA [None]
  - BLOOD CALCIUM DECREASED [None]
  - BLOOD CREATININE DECREASED [None]
  - BLOOD ELECTROLYTES DECREASED [None]
  - BLOOD GLUCOSE DECREASED [None]
  - BLOOD LACTATE DEHYDROGENASE DECREASED [None]
  - BLOOD POTASSIUM DECREASED [None]
  - BLOOD PRESSURE INCREASED [None]
  - BLOOD TRIGLYCERIDES INCREASED [None]
  - BLOOD UREA DECREASED [None]
  - BRAIN DAMAGE [None]
  - BURSITIS [None]
  - CEREBRAL ARTERY OCCLUSION [None]
  - CEREBROVASCULAR ACCIDENT [None]
  - CEREBROVASCULAR DISORDER [None]
  - CONSTIPATION [None]
  - CONVULSION [None]
  - DECREASED APPETITE [None]
  - DEPRESSION [None]
  - DIARRHOEA [None]
  - DIFFICULTY IN WALKING [None]
  - DIZZINESS [None]
  - DYSMENORRHOEA [None]
  - ELECTROCARDIOGRAM ST-T CHANGE [None]
  - ELECTROENCEPHALOGRAM ABNORMAL [None]
  - EMOTIONAL DISTRESS [None]
  - EYE PAIN [None]
  - FACIAL PAIN [None]
  - FACIAL PALSY [None]
  - FAECAL OCCULT BLOOD POSITIVE [None]
  - FLATULENCE [None]
  - GLIOSIS [None]
  - GRAND MAL CONVULSION [None]
  - HAEMORRHOIDS [None]
  - HALLUCINATION, AUDITORY [None]
  - HEMIPARESIS [None]
  - HERPES SIMPLEX [None]
  - INSOMNIA [None]
  - INTRACRANIAL ANEURYSM [None]
  - IRRITABLE BOWEL SYNDROME [None]
  - JOINT DISLOCATION [None]
  - LOSS OF CONSCIOUSNESS [None]
  - MEAN CELL HAEMOGLOBIN INCREASED [None]
  - MEAN CELL VOLUME ABNORMAL [None]
  - MENORRHAGIA [None]
  - MENSTRUAL DISORDER [None]
  - MIGRAINE [None]
  - MITRAL VALVE INCOMPETENCE [None]
  - MOVEMENT DISORDER [None]
  - MUSCLE ATROPHY [None]
  - MUSCLE CONTRACTURE [None]
  - MUSCLE RIGIDITY [None]
  - MUSCLE SPASMS [None]
  - NERVOUS SYSTEM DISORDER [None]
  - ORAL PAIN [None]
  - OSTEOPENIA [None]
  - PAIN [None]
  - PCO2 DECREASED [None]
  - PERONEAL NERVE PALSY [None]
  - PHOTOPSIA [None]
  - PSYCHOMOTOR RETARDATION [None]
  - PSYCHOTIC DISORDER [None]
  - RED BLOOD CELL COUNT DECREASED [None]
  - ROAD TRAFFIC ACCIDENT [None]
  - SCHIZOPHRENIA, DISORGANISED TYPE [None]
  - SOMATISATION DISORDER [None]
  - SUICIDAL IDEATION [None]
  - URINARY INCONTINENCE [None]
  - VITAMIN B12 INCREASED [None]
  - WEIGHT INCREASED [None]
